FAERS Safety Report 10413408 (Version 1)
Quarter: 2014Q3

REPORT INFORMATION
  Report Type: Spontaneous
  Country: JP (occurrence: JP)
  Receive Date: 20140827
  Receipt Date: 20140827
  Transmission Date: 20150326
  Serious: Yes (Hospitalization)
  Sender: FDA-Public Use
  Company Number: JP-GLAXOSMITHKLINE-B0984004A

PATIENT
  Age: 3 Year
  Sex: Male

DRUGS (3)
  1. LAMICTAL [Suspect]
     Active Substance: LAMOTRIGINE
     Indication: CONVULSION
     Dosage: 2MG PER DAY
     Route: 048
     Dates: start: 20140303, end: 20140316
  2. SELENICA-R [Concomitant]
     Active Substance: SELENIUM
     Indication: ELECTROENCEPHALOGRAM ABNORMAL
     Dosage: 160MG TWICE PER DAY
     Route: 048
     Dates: start: 20130617, end: 20140327
  3. LAMICTAL [Suspect]
     Active Substance: LAMOTRIGINE
     Indication: CONVULSION
     Dosage: 4MG PER DAY
     Route: 048
     Dates: start: 20140317, end: 20140327

REACTIONS (20)
  - Hyperthermia [Unknown]
  - Asthenia [Unknown]
  - Eye discharge [Unknown]
  - Eyelid erosion [Unknown]
  - Lip erosion [Unknown]
  - Influenza [Unknown]
  - Stevens-Johnson syndrome [Recovered/Resolved]
  - Scab [Unknown]
  - Erythema [Unknown]
  - Lymphadenopathy [Unknown]
  - Skin exfoliation [Unknown]
  - Rash [Unknown]
  - Pharyngeal erythema [Unknown]
  - Conjunctival hyperaemia [Unknown]
  - Blister [Unknown]
  - Myoclonic epilepsy [Unknown]
  - Vulval disorder [Unknown]
  - Pyrexia [Unknown]
  - Rash [Unknown]
  - Lip haemorrhage [Unknown]

NARRATIVE: CASE EVENT DATE: 20140309
